FAERS Safety Report 11385723 (Version 2)
Quarter: 2015Q3

REPORT INFORMATION
  Report Type: Spontaneous
  Country: IT (occurrence: IT)
  Receive Date: 20150817
  Receipt Date: 20150925
  Transmission Date: 20151125
  Serious: Yes (Hospitalization)
  Sender: FDA-Public Use
  Company Number: IT-ROCHE-1622029

PATIENT
  Age: 40 Year
  Sex: Female

DRUGS (3)
  1. TAVOR [Suspect]
     Active Substance: LORAZEPAM
     Indication: ANXIETY
     Dosage: 2.5 MG TABLETS - 20 TABLETS
     Route: 048
     Dates: start: 20140101
  2. VALIUM [Suspect]
     Active Substance: DIAZEPAM
     Indication: ANXIETY
     Dosage: 5 MG HARD CAPSULES- 20 CAPSULES
     Route: 048
     Dates: start: 20140101
  3. METHADONE HYDROCHLORIDE. [Concomitant]
     Active Substance: METHADONE HYDROCHLORIDE
     Indication: DRUG DEPENDENCE
     Dosage: 5 MG/ML ORAL SOLUTION^1 X 5 ML BOTTLE WITH CHILDRESISTANT CLOSURE
     Route: 048
     Dates: start: 20140101

REACTIONS (2)
  - Sopor [Recovering/Resolving]
  - Drug abuse [Unknown]

NARRATIVE: CASE EVENT DATE: 20150302
